FAERS Safety Report 11800824 (Version 1)
Quarter: 2015Q4

REPORT INFORMATION
  Report Type: Spontaneous
  Country: US (occurrence: US)
  Receive Date: 20151204
  Receipt Date: 20151204
  Transmission Date: 20160305
  Serious: Yes (Other)
  Sender: FDA-Public Use
  Company Number: US-THE MEDICINES COMPANY-US-MDCO-15-00161

PATIENT
  Age: 66 Year
  Sex: Female
  Weight: 59.87 kg

DRUGS (2)
  1. DAPTOMYCIN. [Concomitant]
     Active Substance: DAPTOMYCIN
     Indication: CELLULITIS
     Dosage: NOT REPORTED
     Route: 042
     Dates: start: 20150302, end: 20150304
  2. ORBACTIV [Suspect]
     Active Substance: ORITAVANCIN
     Indication: CELLULITIS
     Route: 041
     Dates: start: 20150305, end: 20150305

REACTIONS (3)
  - Cellulitis [Recovered/Resolved]
  - Subcutaneous abscess [Recovered/Resolved]
  - Drug ineffective [Recovered/Resolved]

NARRATIVE: CASE EVENT DATE: 20150315
